FAERS Safety Report 4627311-9 (Version None)
Quarter: 2005Q1

REPORT INFORMATION
  Report Type: 
  Country: None (occurrence: None)
  Receive Date: 20050331
  Receipt Date: 20050322
  Transmission Date: 20050727
  Serious: No
  Sender: FDA-Public Use
  Company Number: 2005AP01367

PATIENT
  Sex: Male

DRUGS (2)
  1. ATACAND HCT [Suspect]
     Indication: HYPERTENSION
     Dosage: 16 MG + 12.5 MG
     Dates: start: 20050201, end: 20050215
  2. COUMADIN [Concomitant]

REACTIONS (4)
  - DRUG HYPERSENSITIVITY [None]
  - MALAISE [None]
  - SENSORY DISTURBANCE [None]
  - TINNITUS [None]
